FAERS Safety Report 7363870-3 (Version None)
Quarter: 2011Q1

REPORT INFORMATION
  Report Type: 
  Country: None (occurrence: None)
  Receive Date: 20110321
  Receipt Date: 20110315
  Transmission Date: 20110831
  Serious: Yes (Other)
  Sender: FDA-Public Use
  Company Number: MX-PFIZER INC-2011053408

PATIENT
  Age: 16 Year
  Sex: Female
  Weight: 61 kg

DRUGS (26)
  1. RANITIDINE [Concomitant]
     Indication: GASTRITIS
     Dosage: 50 MG, 2X/DAY
     Route: 042
     Dates: start: 20110113, end: 20110212
  2. MANNITOL [Concomitant]
     Indication: INTRACRANIAL PRESSURE INCREASED
     Dosage: 80 MG, 3X/DAY
     Route: 042
     Dates: start: 20110115, end: 20110116
  3. CLONAZEPAM [Concomitant]
     Indication: ANXIETY
     Dosage: 2 MG, 2X/DAY
     Route: 048
     Dates: start: 20110204, end: 20110205
  4. DIPHENYLHYDANTOIN [Concomitant]
     Dosage: 1 G, UNK
     Route: 042
     Dates: start: 20110122, end: 20110124
  5. DIPHENYLHYDANTOIN [Concomitant]
     Dosage: 125 MG, UNK
     Route: 042
     Dates: start: 20110125, end: 20110203
  6. DIPHENYLHYDANTOIN [Concomitant]
     Dosage: 125 MG, UNK
     Route: 042
     Dates: start: 20110206, end: 20110206
  7. DIAZEPAM [Concomitant]
     Indication: ANXIETY
  8. FLUCONAZOLE [Concomitant]
     Indication: INFECTION
     Dosage: 200 MG, EVERY 48 HOURS
     Route: 048
     Dates: start: 20110129, end: 20110130
  9. CEFTRIAXONE [Concomitant]
     Indication: INFECTION
     Dosage: 2 G, 2X/DAY
     Route: 042
     Dates: start: 20110115, end: 20110128
  10. FOLIC ACID [Concomitant]
     Indication: ANAEMIA
     Dosage: 5 MG, 1X/DAY
     Route: 048
     Dates: start: 20110125, end: 20110203
  11. DIAZEPAM [Concomitant]
     Indication: CONVULSION
     Dosage: 10 MG, 2X/DAY
     Route: 048
     Dates: start: 20110126, end: 20110211
  12. ACETAMINOPHEN [Concomitant]
     Indication: PAIN
     Dosage: 500 MG, 3X/DAY
     Route: 048
     Dates: start: 20110126, end: 20110204
  13. DIPHENYLHYDANTOIN [Concomitant]
     Indication: CONVULSION
     Dosage: 1 G, 3X/DAY
     Route: 042
     Dates: start: 20110115, end: 20110116
  14. PENICILLIN G SODIUM [Concomitant]
     Indication: INFECTION
     Dosage: 1.5 MILLIONIU, 4X/DAY
     Route: 042
     Dates: start: 20110114, end: 20110128
  15. FUROSEMIDE [Concomitant]
     Indication: DIURETIC THERAPY
     Dosage: 20 MG, 4X/DAY
     Route: 042
  16. LINEZOLID [Suspect]
     Indication: DEVICE RELATED INFECTION
     Dosage: 200 MG, 1X/DAY
     Route: 042
     Dates: start: 20110204, end: 20110205
  17. METAMIZOLE [Concomitant]
     Dosage: 2 G, UNK
     Route: 042
     Dates: start: 20110125, end: 20110127
  18. MAGNESIUM VALPROATE [Concomitant]
     Indication: CONVULSION
     Dosage: 200 MG, 3X/DAY
     Route: 048
     Dates: start: 20110125, end: 20110204
  19. VANCOMYCIN [Concomitant]
     Indication: INFECTION
     Dosage: 1 G, 3X/DAY
     Route: 042
     Dates: start: 20110115, end: 20110128
  20. METAMIZOLE [Concomitant]
     Dosage: 2 G, UNK
     Route: 042
     Dates: start: 20110201, end: 20110203
  21. FUROSEMIDE [Concomitant]
     Dosage: UNK
  22. FUROSEMIDE [Concomitant]
     Dosage: UNK
  23. FERROUS SULFATE [Concomitant]
     Indication: ANAEMIA
     Dosage: 200 MG, 1X/DAY
     Route: 048
     Dates: start: 20110126, end: 20110201
  24. MEROPENEM [Concomitant]
     Indication: INFECTION
     Dosage: 1 G, 2X/DAY
     Route: 042
     Dates: start: 20110201, end: 20110205
  25. METAMIZOLE [Concomitant]
     Indication: PAIN
     Dosage: 500 MG, 3X/DAY
     Route: 042
     Dates: start: 20110119, end: 20110124
  26. HALOPERIDOL [Concomitant]
     Indication: PSYCHOTIC DISORDER
     Dosage: 1.25 MG, 2X/DAY
     Route: 048
     Dates: start: 20110126, end: 20110128

REACTIONS (4)
  - TOXIC EPIDERMAL NECROLYSIS [None]
  - SEPTIC SHOCK [None]
  - METABOLIC ACIDOSIS [None]
  - RENAL FAILURE [None]
